FAERS Safety Report 11894929 (Version 1)
Quarter: 2016Q1

REPORT INFORMATION
  Report Type: Spontaneous
  Country: US (occurrence: None)
  Receive Date: 20160106
  Receipt Date: 20160106
  Transmission Date: 20160526
  Serious: Yes (Hospitalization)
  Sender: FDA-Public Use
  Company Number: None

PATIENT
  Age: 36 Year
  Sex: Female
  Weight: 81.65 kg

DRUGS (2)
  1. ALBENDAZOL ALBENDAZOLE 200MG [Suspect]
     Active Substance: ALBENDAZOLE
     Indication: NEMATODIASIS
     Route: 048
  2. MULTI VITAMIN [Concomitant]
     Active Substance: VITAMINS

REACTIONS (2)
  - Hepatic pain [None]
  - Bone pain [None]

NARRATIVE: CASE EVENT DATE: 20151229
